FAERS Safety Report 17456303 (Version 1)
Quarter: 2020Q1

REPORT INFORMATION
  Report Type: Spontaneous
  Country: FR (occurrence: FR)
  Receive Date: 20200225
  Receipt Date: 20200225
  Transmission Date: 20200409
  Serious: Yes (Hospitalization)
  Sender: FDA-Public Use
  Company Number: FR-PFIZER INC-2020074947

PATIENT
  Sex: Female

DRUGS (3)
  1. ALPRAZOLAM. [Suspect]
     Active Substance: ALPRAZOLAM
     Dosage: 3 MG, 1X/DAY
     Route: 048
     Dates: start: 2009
  2. IMOVANE [Suspect]
     Active Substance: ZOPICLONE
     Dosage: 15 MG, UNK
     Route: 065
  3. SERESTA [Suspect]
     Active Substance: OXAZEPAM
     Dosage: 20 MG, UNK
     Route: 048
     Dates: start: 2009, end: 201908

REACTIONS (2)
  - Intentional product misuse [Recovering/Resolving]
  - Alcohol abuse [Recovering/Resolving]

NARRATIVE: CASE EVENT DATE: 2009
